FAERS Safety Report 25984891 (Version 1)
Quarter: 2025Q4

REPORT INFORMATION
  Report Type: Spontaneous
  Country: US (occurrence: US)
  Receive Date: 20251031
  Receipt Date: 20251031
  Transmission Date: 20260118
  Serious: No
  Sender: ROCHE
  Company Number: US-ROCHE-10000423194

PATIENT

DRUGS (4)
  1. RITUXIMAB [Suspect]
     Active Substance: RITUXIMAB
     Indication: Product used for unknown indication
     Route: 065
  2. GAZYVA [Suspect]
     Active Substance: OBINUTUZUMAB
     Indication: Anti-neutrophil cytoplasmic antibody positive vasculitis
     Dosage: DOSE: 500
     Route: 065
  3. BENLYSTA [Concomitant]
     Active Substance: BELIMUMAB
  4. VOCLOSPORIN [Concomitant]
     Active Substance: VOCLOSPORIN

REACTIONS (2)
  - Off label use [Unknown]
  - Drug hypersensitivity [Unknown]
